FAERS Safety Report 8851941 (Version 3)
Quarter: 2013Q1

REPORT INFORMATION
  Report Type: Spontaneous
  Country: FI (occurrence: FI)
  Receive Date: 20121022
  Receipt Date: 20130117
  Transmission Date: 20140127
  Serious: Yes (Hospitalization)
  Sender: FDA-Public Use
  Company Number: FI-NOVOPROD-362030

PATIENT
  Age: 9 Year
  Sex: Male

DRUGS (8)
  1. NOVOSEVEN [Suspect]
     Indication: FACTOR VIII DEFICIENCY
     Dosage: 2 MG, 14.6, 2
  2. NOVOSEVEN [Suspect]
     Dosage: 2 MG, 15.6 , 3
  3. NOVOSEVEN [Suspect]
     Dosage: 2 MG, 21.6, 10
  4. NOVOSEVEN [Suspect]
     Dosage: 2 MG, 4.6, 17
  5. NOVOSEVEN [Suspect]
     Dosage: 2 MG, 18.6, 68
  6. NOVOSEVEN [Suspect]
     Dosage: 5 MG, 4.6, 1
  7. NOVOSEVEN [Suspect]
     Dosage: 1 MG, 5.6
  8. NOVOSEVEN [Suspect]
     Dosage: 1 MG, 19.6

REACTIONS (1)
  - Device occlusion [Recovered/Resolved]
